FAERS Safety Report 5027743-3 (Version None)
Quarter: 2006Q2

REPORT INFORMATION
  Report Type: 
  Country: None (occurrence: None)
  Receive Date: 20060428
  Receipt Date: 20060307
  Transmission Date: 20061013
  Serious: Yes (Death)
  Sender: FDA-Public Use
  Company Number: COT_0479_2006

PATIENT
  Age: 55 Year
  Sex: Female
  Weight: 61.2356 kg

DRUGS (10)
  1. VENTAVIS [Suspect]
     Indication: PULMONARY HYPERTENSION
     Dosage: 5 MCG 6XD IH
     Route: 055
     Dates: start: 20050706
  2. LASIX [Concomitant]
  3. K-TAB [Concomitant]
  4. URSODIOL [Concomitant]
  5. CALCIUM GLUCONATE [Concomitant]
  6. MULTIVITAMIN [Concomitant]
  7. PRANDIN [Concomitant]
  8. COUMADIN [Concomitant]
  9. ASPIRIN [Concomitant]
  10. PROTONIX [Concomitant]

REACTIONS (1)
  - RIGHT VENTRICULAR FAILURE [None]
